FAERS Safety Report 6649911-7 (Version None)
Quarter: 2010Q1

REPORT INFORMATION
  Report Type: 
  Country: None (occurrence: None)
  Receive Date: 20100325
  Receipt Date: 20100315
  Transmission Date: 20100710
  Serious: No
  Sender: FDA-Public Use
  Company Number: US-BIOGENIDEC-2010BI008588

PATIENT
  Age: 56 Year
  Sex: Male

DRUGS (2)
  1. AVONEX [Suspect]
     Indication: MULTIPLE SCLEROSIS
     Route: 030
     Dates: start: 20050907
  2. ZYRTEC [Concomitant]
     Indication: SINUS DISORDER
     Route: 048
     Dates: start: 20080101

REACTIONS (2)
  - FATIGUE [None]
  - HYPERSOMNIA [None]
